FAERS Safety Report 7651406-9 (Version None)
Quarter: 2011Q3

REPORT INFORMATION
  Report Type: 
  Country: None (occurrence: None)
  Receive Date: 20110802
  Receipt Date: 20110721
  Transmission Date: 20111222
  Serious: No
  Sender: FDA-Public Use
  Company Number: PHHY2011US66149

PATIENT
  Age: 67 Year
  Sex: Female

DRUGS (13)
  1. ALDACTONE [Concomitant]
  2. MAGNESIUM [Concomitant]
  3. CALTRATE +D [Concomitant]
  4. COUMADIN [Concomitant]
  5. PRADAXA [Concomitant]
  6. VITAMIN B-12 [Concomitant]
  7. ZOFRAN [Concomitant]
  8. SYNTHROID [Concomitant]
  9. TASIGNA [Suspect]
     Indication: CHRONIC MYELOID LEUKAEMIA
     Dosage: 300 MG, BID
     Route: 048
     Dates: start: 20110601
  10. LABETALOL HYDROCHLORIDE [Concomitant]
  11. TOPROL-XL [Concomitant]
  12. LOMOTIL [Concomitant]
  13. EDECRIN [Concomitant]

REACTIONS (7)
  - FATIGUE [None]
  - MUSCLE SPASMS [None]
  - NAUSEA [None]
  - VOMITING [None]
  - PRURITUS [None]
  - BACK PAIN [None]
  - RASH [None]
